FAERS Safety Report 9014018 (Version 4)
Quarter: 2013Q2

REPORT INFORMATION
  Report Type: Spontaneous
  Country: JP (occurrence: JP)
  Receive Date: 20130115
  Receipt Date: 20130424
  Transmission Date: 20140414
  Serious: Yes (Other)
  Sender: FDA-Public Use
  Company Number: JP-PFIZER INC-2013011359

PATIENT
  Age: 13 Year
  Sex: Female
  Weight: 40.9 kg

DRUGS (20)
  1. METHYLPREDNISOLONE SODIUM SUCCINATE [Suspect]
     Indication: MIXED CONNECTIVE TISSUE DISEASE
     Dosage: 1 G, 1X/DAY
     Route: 041
     Dates: start: 20120202, end: 20120204
  2. METHYLPREDNISOLONE SODIUM SUCCINATE [Suspect]
     Dosage: 1 G, 1X/DAY
     Route: 041
     Dates: start: 20120209, end: 20120211
  3. METHYLPREDNISOLONE SODIUM SUCCINATE [Suspect]
     Dosage: 1 G, 1X/DAY
     Route: 041
     Dates: start: 20120216, end: 20120218
  4. METHYLPREDNISOLONE SODIUM SUCCINATE [Suspect]
     Dosage: 1 G, 1X/DAY
     Route: 041
     Dates: start: 20120515, end: 20120517
  5. PREDNISOLONE [Suspect]
     Indication: PLATELET COUNT DECREASED
     Dosage: UNK
     Route: 048
     Dates: start: 201101
  6. PREDNISOLONE [Suspect]
     Indication: MIXED CONNECTIVE TISSUE DISEASE
     Dosage: 40 MG DAILY IN 3 DIVIDED DOSE
     Route: 048
     Dates: start: 20120418, end: 20120502
  7. PREDNISOLONE [Suspect]
     Dosage: 60 MG DAILY IN 3 DIVIDED DOSE
     Route: 048
     Dates: start: 20120503, end: 20120514
  8. PREDNISOLONE [Suspect]
     Dosage: 30 MG DAILY IN 2 DIVIDED DOSE
     Route: 048
     Dates: start: 20120518, end: 20120521
  9. LIMAPROST [Concomitant]
     Indication: PLATELET COUNT DECREASED
     Dosage: UNK
     Dates: start: 201101
  10. BOSENTAN [Concomitant]
     Indication: PLATELET COUNT DECREASED
     Dosage: UNK
     Dates: start: 201101
  11. MIZORIBINE [Concomitant]
  12. MYCOPHENOLATE MOFETIL [Concomitant]
  13. TACROLIMUS [Concomitant]
  14. CYCLOPHOSPHAMIDE [Concomitant]
     Dosage: PULSE THERAPY
     Dates: start: 201205
  15. OPALMON [Concomitant]
     Indication: MIXED CONNECTIVE TISSUE DISEASE
     Dosage: 5 UG, 2X/DAY
     Route: 048
     Dates: start: 20110427
  16. CELLCEPT [Concomitant]
     Indication: MIXED CONNECTIVE TISSUE DISEASE
     Dosage: 2000 MG DAILY IN 3 DIVIDED DOSE
     Route: 048
     Dates: start: 20120229
  17. WARFARIN [Concomitant]
     Indication: MIXED CONNECTIVE TISSUE DISEASE
     Dosage: 1 MG, 1X/DAY
     Route: 048
     Dates: start: 20120229
  18. BAKTAR [Concomitant]
     Indication: INFECTION PROPHYLAXIS
     Dosage: 1 TABLET ONCE DAILY
     Route: 048
     Dates: start: 20120418
  19. PROGRAF [Concomitant]
     Indication: MIXED CONNECTIVE TISSUE DISEASE
     Dosage: 3 MG, 1X/DAY
     Route: 048
     Dates: start: 20111228
  20. GASTER D [Concomitant]
     Indication: PEPTIC ULCER
     Dosage: 10 MG, 2X/DAY
     Route: 048
     Dates: start: 20120515

REACTIONS (1)
  - Osteonecrosis [Not Recovered/Not Resolved]
